FAERS Safety Report 23037245 (Version 1)
Quarter: 2023Q4

REPORT INFORMATION
  Report Type: Spontaneous
  Country: CA (occurrence: CA)
  Receive Date: 20231006
  Receipt Date: 20231006
  Transmission Date: 20240110
  Serious: Yes (Other)
  Sender: FDA-Public Use
  Company Number: CA-drreddys-SPO/CAN/23/0178694

PATIENT
  Age: 76 Year
  Sex: Female

DRUGS (2)
  1. LENALIDOMIDE [Suspect]
     Active Substance: LENALIDOMIDE
     Indication: Product used for unknown indication
  2. ASPIRIN [Suspect]
     Active Substance: ASPIRIN
     Indication: Product used for unknown indication

REACTIONS (11)
  - Asthenia [Unknown]
  - Confusional state [Unknown]
  - Diarrhoea [Unknown]
  - Epistaxis [Unknown]
  - Faeces discoloured [Unknown]
  - Fall [Unknown]
  - Head injury [Unknown]
  - Nausea [Unknown]
  - Somnolence [Unknown]
  - Syncope [Unknown]
  - Product dose omission in error [Unknown]
